FAERS Safety Report 7767766-4 (Version None)
Quarter: 2011Q3

REPORT INFORMATION
  Report Type: 
  Country: None (occurrence: None)
  Receive Date: 20110922
  Receipt Date: 20101111
  Transmission Date: 20111222
  Serious: No
  Sender: FDA-Public Use
  Company Number: US-ASTRAZENECA-2010SE50154

PATIENT
  Age: 37 Year
  Sex: Male
  Weight: 95.3 kg

DRUGS (6)
  1. SEROQUEL [Suspect]
     Route: 048
  2. EFFEXOR [Concomitant]
     Indication: BIPOLAR I DISORDER
     Route: 065
  3. SEROQUEL [Suspect]
     Indication: BIPOLAR DISORDER
     Route: 048
  4. LISINOPRIL [Concomitant]
  5. LAMICTAL [Concomitant]
     Indication: AFFECTIVE DISORDER
     Route: 065
  6. CLONIDINE [Concomitant]
     Indication: HYPERTENSION
     Route: 065

REACTIONS (7)
  - PAIN IN EXTREMITY [None]
  - HYPERTENSION [None]
  - INSOMNIA [None]
  - HALLUCINATION, AUDITORY [None]
  - RENAL DISORDER [None]
  - DRUG DOSE OMISSION [None]
  - DIZZINESS [None]
